FAERS Safety Report 23857881 (Version 2)
Quarter: 2025Q3

REPORT INFORMATION
  Report Type: Spontaneous
  Country: EU (occurrence: EU)
  Receive Date: 20240515
  Receipt Date: 20250813
  Transmission Date: 20251020
  Serious: Yes (Hospitalization, Other)
  Sender: MYLAN
  Company Number: EU-HIKMA PHARMACEUTICALS-PT-H14001-24-03432

PATIENT
  Age: 93 Year
  Sex: Female

DRUGS (16)
  1. ATORVASTATIN [Suspect]
     Active Substance: ATORVASTATIN
     Indication: Dyslipidaemia
  2. ATORVASTATIN [Suspect]
     Active Substance: ATORVASTATIN
     Route: 065
  3. ATORVASTATIN [Suspect]
     Active Substance: ATORVASTATIN
     Route: 065
  4. ATORVASTATIN [Suspect]
     Active Substance: ATORVASTATIN
  5. NEBIVOLOL [Suspect]
     Active Substance: NEBIVOLOL
     Indication: Hypertension
  6. NEBIVOLOL [Suspect]
     Active Substance: NEBIVOLOL
     Route: 065
  7. NEBIVOLOL [Suspect]
     Active Substance: NEBIVOLOL
     Route: 065
  8. NEBIVOLOL [Suspect]
     Active Substance: NEBIVOLOL
  9. AMLODIPINE BESYLATE\LISINOPRIL [Suspect]
     Active Substance: AMLODIPINE BESYLATE\LISINOPRIL
     Indication: Hypertension
  10. AMLODIPINE BESYLATE\LISINOPRIL [Suspect]
     Active Substance: AMLODIPINE BESYLATE\LISINOPRIL
     Route: 065
  11. AMLODIPINE BESYLATE\LISINOPRIL [Suspect]
     Active Substance: AMLODIPINE BESYLATE\LISINOPRIL
     Route: 065
  12. AMLODIPINE BESYLATE\LISINOPRIL [Suspect]
     Active Substance: AMLODIPINE BESYLATE\LISINOPRIL
  13. FUROSEMIDE [Suspect]
     Active Substance: FUROSEMIDE
     Indication: Hypertension
  14. FUROSEMIDE [Suspect]
     Active Substance: FUROSEMIDE
     Route: 065
  15. FUROSEMIDE [Suspect]
     Active Substance: FUROSEMIDE
     Route: 065
  16. FUROSEMIDE [Suspect]
     Active Substance: FUROSEMIDE

REACTIONS (5)
  - Pulmonary embolism [Unknown]
  - Syncope [Unknown]
  - Hypotension [Unknown]
  - Decreased appetite [Unknown]
  - Acute kidney injury [Unknown]
